FAERS Safety Report 6504260-2 (Version None)
Quarter: 2009Q4

REPORT INFORMATION
  Report Type: 
  Country: None (occurrence: None)
  Receive Date: 20091215
  Receipt Date: 20091211
  Transmission Date: 20100525
  Serious: Yes (Hospitalization)
  Sender: FDA-Public Use
  Company Number: 2009SP002535

PATIENT
  Age: 36 Year
  Sex: Male

DRUGS (9)
  1. VIRAFERON [Suspect]
     Indication: HEPATITIS C
     Dosage: 3 MIU;TIW
     Dates: start: 19990901, end: 20000101
  2. RIBAVIRIN [Suspect]
     Indication: HEPATITIS C
     Dosage: 1000 MG;QD
     Dates: start: 19990901, end: 20000101
  3. EUPRESSYL [Concomitant]
  4. AMLOR [Concomitant]
  5. ZESTRIL [Concomitant]
  6. ATACAND [Concomitant]
  7. EUCALCIC [Concomitant]
  8. ASPEGIC 1000 [Concomitant]
  9. LEXOMIL [Concomitant]

REACTIONS (12)
  - BLOOD CREATINE PHOSPHOKINASE INCREASED [None]
  - BLOOD LACTATE DEHYDROGENASE INCREASED [None]
  - BLOOD PRESSURE INCREASED [None]
  - CARDIAC FAILURE [None]
  - DIALYSIS [None]
  - GENERAL PHYSICAL HEALTH DETERIORATION [None]
  - HAPTOGLOBIN DECREASED [None]
  - HYPERCALCAEMIA [None]
  - MALIGNANT HYPERTENSION [None]
  - NEPHROANGIOSCLEROSIS [None]
  - RENAL FAILURE ACUTE [None]
  - THROMBOTIC MICROANGIOPATHY [None]
